FAERS Safety Report 18768849 (Version 1)
Quarter: 2021Q1

REPORT INFORMATION
  Report Type: Spontaneous
  Country: US (occurrence: US)
  Receive Date: 20210121
  Receipt Date: 20210121
  Transmission Date: 20210419
  Serious: Yes (Hospitalization)
  Sender: FDA-Public Use
  Company Number: None

PATIENT
  Sex: Female

DRUGS (2)
  1. EPOGEN [Suspect]
     Active Substance: ERYTHROPOIETIN
     Indication: CHRONIC KIDNEY DISEASE
     Dosage: ?          OTHER STRENGTH:10,000 U/ML;OTHER DOSE:10,000 UNITS;?
     Route: 058
     Dates: start: 20200722
  2. EPOGEN [Suspect]
     Active Substance: ERYTHROPOIETIN
     Indication: ANAEMIA
     Dosage: ?          OTHER STRENGTH:10,000 U/ML;OTHER DOSE:10,000 UNITS;?
     Route: 058
     Dates: start: 20200722

REACTIONS (1)
  - Hospitalisation [None]
